FAERS Safety Report 22040276 (Version 1)
Quarter: 2023Q1

REPORT INFORMATION
  Report Type: Other
  Country: FR (occurrence: FR)
  Receive Date: 20230227
  Receipt Date: 20230227
  Transmission Date: 20230417
  Serious: Yes (Hospitalization, Other)
  Sender: FDA-Public Use
  Company Number: FR-CELLTRION INC.-2023FR004270

PATIENT

DRUGS (8)
  1. TRASTUZUMAB [Suspect]
     Active Substance: TRASTUZUMAB
     Indication: Product used for unknown indication
     Route: 042
  2. TUKYSA [Suspect]
     Active Substance: TUCATINIB
     Indication: Targeted cancer therapy
     Dosage: 600 MILLIGRAM
     Route: 048
  3. ENOXAPARIN SODIUM [Suspect]
     Active Substance: ENOXAPARIN SODIUM
     Indication: Embolism venous
     Route: 058
  4. RACECADOTRIL [Suspect]
     Active Substance: RACECADOTRIL
     Indication: Diarrhoea
     Route: 048
  5. KEPPRA [Suspect]
     Active Substance: LEVETIRACETAM
     Indication: Epilepsy
     Dosage: 2500 MILLIGRAM
     Route: 048
     Dates: start: 20221207
  6. XELODA [Suspect]
     Active Substance: CAPECITABINE
     Indication: Osteoporotic fracture
     Dosage: 2600 MILLIGRAM
     Route: 048
  7. IMODIUM [Suspect]
     Active Substance: LOPERAMIDE HYDROCHLORIDE
     Indication: Diarrhoea
     Dosage: 3 G
     Route: 048
  8. ECONAZOLE [Concomitant]
     Active Substance: ECONAZOLE

REACTIONS (2)
  - Epilepsy [Recovering/Resolving]
  - Confusional state [Recovering/Resolving]

NARRATIVE: CASE EVENT DATE: 20230124
